FAERS Safety Report 11515464 (Version 1)
Quarter: 2015Q3

REPORT INFORMATION
  Report Type: Report from Study
  Country: CA (occurrence: CA)
  Receive Date: 20150916
  Receipt Date: 20150916
  Transmission Date: 20151125
  Serious: No
  Sender: FDA-Public Use
  Company Number: CA-UCBSA-088050

PATIENT
  Age: 65 Year
  Sex: Male
  Weight: 67.4 kg

DRUGS (5)
  1. DIOVAN [Concomitant]
     Active Substance: VALSARTAN
     Indication: HYPERTENSION
     Dosage: 160 MG, ONCE DAILY (QD)
     Route: 048
     Dates: start: 1981
  2. SYNTROID [Concomitant]
     Indication: HYPOTHYROIDISM
     Dosage: .05 MG, ONCE DAILY (QD)
     Route: 048
     Dates: start: 1981
  3. BISOPROLOL [Suspect]
     Active Substance: BISOPROLOL
     Indication: HYPERTENSION
     Dosage: 7.5 MG, ONCE DAILY (QD)
     Route: 048
     Dates: start: 1981, end: 20130926
  4. ADALAT CC [Concomitant]
     Active Substance: NIFEDIPINE
     Indication: HYPERTENSION
     Dosage: 60 MG, ONCE DAILY (QD)
     Route: 048
     Dates: start: 1981
  5. *CARBAMAZEPINE [Suspect]
     Active Substance: CARBAMAZEPINE
     Indication: EPILEPSY
     Dosage: UNK UNK, 2X/DAY (BID)
     Route: 048
     Dates: start: 20130228

REACTIONS (1)
  - Bradycardia [Recovered/Resolved]

NARRATIVE: CASE EVENT DATE: 20130318
